FAERS Safety Report 9080736 (Version 2)
Quarter: 2013Q1

REPORT INFORMATION
  Report Type: Report from Study
  Country: DE (occurrence: DE)
  Receive Date: 20130130
  Receipt Date: 20130208
  Transmission Date: 20140127
  Serious: Yes (Death)
  Sender: FDA-Public Use
  Company Number: DE-ABBOTT-13P-062-1043077-00

PATIENT
  Age: 86 Year
  Sex: Male

DRUGS (1)
  1. TRENTANTONE [Suspect]
     Indication: PROSTATE CANCER
     Route: 058
     Dates: start: 20120713, end: 20120713

REACTIONS (1)
  - Prostate cancer [Fatal]
